FAERS Safety Report 5415201-3 (Version None)
Quarter: 2007Q3

REPORT INFORMATION
  Report Type: 
  Country: None (occurrence: None)
  Receive Date: 20070813
  Receipt Date: 20070802
  Transmission Date: 20080115
  Serious: Yes (Other)
  Sender: FDA-Public Use
  Company Number: 163-C5013-06040708

PATIENT
  Age: 64 Year
  Sex: Female
  Weight: 107 kg

DRUGS (4)
  1. CC-5013 (LENALIDOMIDE) (CAPSULES) [Suspect]
     Indication: MULTIPLE MYELOMA
     Dosage: 25 MG, QD ON DAYS 1-21 Q28D, ORAL
     Route: 048
     Dates: start: 20050526, end: 20051121
  2. DEXAMETHASONE TAB [Suspect]
     Indication: MULTIPLE MYELOMA
     Dosage: 40 MG, QD ON DAYS 1, 8, 15, + 22 Q28D, ORAL
     Route: 048
     Dates: start: 20050526, end: 20051122
  3. ZOMETA [Suspect]
     Indication: MULTIPLE MYELOMA
     Dosage: 4 MG,; 2 MG,
  4. CALCIUM (CALCIUM) [Concomitant]

REACTIONS (3)
  - HYPOALBUMINAEMIA [None]
  - HYPOCALCAEMIA [None]
  - LABORATORY TEST INTERFERENCE [None]
